FAERS Safety Report 9027927 (Version 1)
Quarter: 2013Q1

REPORT INFORMATION
  Report Type: Spontaneous
  Country: US (occurrence: None)
  Receive Date: 20130114
  Receipt Date: 20130114
  Transmission Date: 20140127
  Serious: No
  Sender: FDA-Public Use
  Company Number: None

PATIENT
  Age: 66 Year
  Sex: Female

DRUGS (12)
  1. SULFAMETHOXAZOLE AND TRIMETHOPRIM 800/160 MG [Suspect]
     Route: 048
     Dates: start: 20121213, end: 20121214
  2. DILTIAZEM [Concomitant]
  3. ATASVASTATIN [Concomitant]
  4. VALSARTAN [Concomitant]
  5. MULTIVIT [Concomitant]
  6. OMEPRAZOLE [Concomitant]
  7. MIRALAX [Concomitant]
  8. DOCUSATE [Concomitant]
  9. FISH OIL [Concomitant]
  10. ASA [Concomitant]
  11. CALCIUM +D [Concomitant]
  12. IBUPROFEN [Concomitant]

REACTIONS (12)
  - Dyspnoea [None]
  - Chest discomfort [None]
  - Dizziness [None]
  - Tremor [None]
  - Chest pain [None]
  - Cough [None]
  - Headache [None]
  - Malaise [None]
  - Fatigue [None]
  - Nausea [None]
  - Asthenia [None]
  - Anxiety [None]
